FAERS Safety Report 5122325-7 (Version None)
Quarter: 2006Q4

REPORT INFORMATION
  Report Type: 
  Country: None (occurrence: None)
  Receive Date: 20061003
  Receipt Date: 20060919
  Transmission Date: 20070319
  Serious: Yes (Hospitalization)
  Sender: FDA-Public Use
  Company Number: 2006PV020114

PATIENT
  Age: 49 Year
  Sex: Female

DRUGS (4)
  1. BYETTA [Suspect]
     Indication: DIABETES MELLITUS NON-INSULIN-DEPENDENT
     Dosage: 5 MCG; BID; SC
     Route: 058
     Dates: start: 20060601, end: 20060819
  2. GLUCOVANCE [Concomitant]
  3. AVANDIA [Concomitant]
  4. PREDNISONE TAB [Concomitant]

REACTIONS (2)
  - CONDITION AGGRAVATED [None]
  - IDIOPATHIC THROMBOCYTOPENIC PURPURA [None]
